FAERS Safety Report 6442112-7 (Version None)
Quarter: 2009Q4

REPORT INFORMATION
  Report Type: 
  Country: None (occurrence: None)
  Receive Date: 20091116
  Receipt Date: 20091104
  Transmission Date: 20100525
  Serious: Yes (Other)
  Sender: FDA-Public Use
  Company Number: GB-PFIZER INC-2009293597

PATIENT
  Age: 71 Year
  Sex: Female

DRUGS (10)
  1. DOXAZOSIN MESILATE [Suspect]
  2. METFORMIN HCL [Suspect]
     Indication: DIABETES MELLITUS
     Dosage: 1 G, 2X/DAY
  3. GLICLAZIDE [Suspect]
     Indication: DIABETES MELLITUS
     Dosage: 60 MG, 2X/DAY
  4. BENDROFLUAZIDE [Suspect]
  5. ATENOLOL [Suspect]
  6. CLOPIDOGREL SULFATE [Suspect]
  7. ACETYLSALICYLIC ACID [Suspect]
  8. ALLOPURINOL [Suspect]
  9. IRBESARTAN [Suspect]
  10. PERINDOPRIL [Suspect]

REACTIONS (4)
  - DRUG INTERACTION [None]
  - HYPOGLYCAEMIA [None]
  - LACTIC ACIDOSIS [None]
  - RENAL FAILURE ACUTE [None]
